FAERS Safety Report 5377776-2 (Version None)
Quarter: 2007Q3

REPORT INFORMATION
  Report Type: 
  Country: None (occurrence: None)
  Receive Date: 20070703
  Receipt Date: 20070622
  Transmission Date: 20080115
  Serious: Yes (Other)
  Sender: FDA-Public Use
  Company Number: FR-ELI_LILLY_AND_COMPANY-FR200705001030

PATIENT
  Age: 74 Year
  Sex: Female
  Weight: 54 kg

DRUGS (2)
  1. EVISTA [Suspect]
     Indication: OSTEOPENIA
     Dosage: 60 MG, DAILY (1/D)
     Route: 048
     Dates: start: 20040413, end: 20070502
  2. STEROGYL [Concomitant]
     Indication: PROPHYLAXIS
     Dosage: 3 D/F, DAILY (1/D)
     Route: 048
     Dates: start: 20040101

REACTIONS (2)
  - GLOBAL AMNESIA [None]
  - TRANSIENT ISCHAEMIC ATTACK [None]
